FAERS Safety Report 9901676 (Version 2)
Quarter: 2014Q1

REPORT INFORMATION
  Report Type: Spontaneous
  Country: IT (occurrence: IT)
  Receive Date: 20140217
  Receipt Date: 20140311
  Transmission Date: 20141002
  Serious: Yes (Other)
  Sender: FDA-Public Use
  Company Number: PHHY2014IT018656

PATIENT
  Age: 83 Year
  Sex: Male

DRUGS (11)
  1. EXELON PATCH [Suspect]
     Indication: DEMENTIA ALZHEIMER^S TYPE
     Dosage: 4.6 MG/DAY
     Route: 062
     Dates: start: 20130101, end: 20131210
  2. METFORMIN [Concomitant]
     Dosage: UNK UKN, UNK
  3. GLIMEPIRIDE [Concomitant]
     Dosage: UNK UKN, UNK
  4. TAMSULOSIN [Concomitant]
     Dosage: UNK UKN, UNK
  5. ESOMEPRAZOLE [Concomitant]
     Dosage: UNK UKN, UNK
  6. LEVOFLOXACIN [Concomitant]
     Dosage: UNK UKN, UNK
  7. DIBASE [Concomitant]
     Dosage: UNK UKN, UNK
     Route: 048
  8. LANOXIN [Concomitant]
     Dosage: UNK UKN, UNK
  9. CARDIOASPIRIN [Concomitant]
     Dosage: UNK UKN, UNK
  10. ISOPTIN [Concomitant]
     Dosage: UNK UKN, UNK
  11. ENOXAPARIN [Concomitant]
     Dosage: 4000 IU, UNK

REACTIONS (2)
  - Disorientation [Recovering/Resolving]
  - Hallucination [Recovering/Resolving]
